FAERS Safety Report 26169361 (Version 1)
Quarter: 2025Q4

REPORT INFORMATION
  Report Type: Spontaneous
  Country: JP (occurrence: JP)
  Receive Date: 20251217
  Receipt Date: 20251217
  Transmission Date: 20260117
  Serious: Yes (Hospitalization)
  Sender: NOVARTIS
  Company Number: JP-002147023-NVSJ2025JP011990

PATIENT
  Age: 9 Decade
  Sex: Male

DRUGS (5)
  1. EVEROLIMUS [Interacting]
     Active Substance: EVEROLIMUS
     Indication: Renal transplant
     Dosage: UNK
     Route: 048
  2. EVEROLIMUS [Interacting]
     Active Substance: EVEROLIMUS
     Dosage: DOSE REDUCED
     Route: 048
  3. TACROLIMUS [Interacting]
     Active Substance: TACROLIMUS
     Indication: Renal transplant
     Dosage: UNK
     Route: 048
  4. TACROLIMUS [Interacting]
     Active Substance: TACROLIMUS
     Dosage: DOSE REDUCED
     Route: 048
  5. FOSRAVUCONAZOLE [Interacting]
     Active Substance: FOSRAVUCONAZOLE
     Indication: Dermatophytosis of nail
     Dosage: UNK
     Route: 048

REACTIONS (5)
  - Renal impairment [Recovering/Resolving]
  - Oedema peripheral [Recovering/Resolving]
  - Immunosuppressant drug level increased [Recovering/Resolving]
  - Drug interaction [Recovering/Resolving]
  - Product use issue [Unknown]
